FAERS Safety Report 14282101 (Version 1)
Quarter: 2017Q4

REPORT INFORMATION
  Report Type: Spontaneous
  Country: US (occurrence: US)
  Receive Date: 20171213
  Receipt Date: 20171213
  Transmission Date: 20180321
  Serious: No
  Sender: FDA-Public Use
  Company Number: US-LUNDBECK-DKLU2035014

PATIENT
  Age: 71 Year
  Sex: Male

DRUGS (1)
  1. NORTHERA [Suspect]
     Active Substance: DROXIDOPA
     Indication: PRODUCT USED FOR UNKNOWN INDICATION
     Dosage: SCHEDULE C -TITRATION COMPLETE
     Route: 048
     Dates: start: 20170718

REACTIONS (7)
  - Blood pressure immeasurable [Unknown]
  - Fatigue [Unknown]
  - Blood pressure fluctuation [Unknown]
  - Dizziness [Unknown]
  - Asthenia [Unknown]
  - Myalgia [Unknown]
  - Abdominal pain [Unknown]

NARRATIVE: CASE EVENT DATE: 20170718
